FAERS Safety Report 24074719 (Version 1)
Quarter: 2024Q3

REPORT INFORMATION
  Report Type: Report from Study
  Country: US (occurrence: US)
  Receive Date: 20240710
  Receipt Date: 20240710
  Transmission Date: 20241017
  Serious: Yes (Other)
  Sender: PFIZER
  Company Number: US-SEATTLE GENETICS-2024SGN05703

PATIENT
  Age: 60 Year
  Sex: Female

DRUGS (2)
  1. TUKYSA [Suspect]
     Active Substance: TUCATINIB
     Indication: Breast cancer female
     Dosage: 150 MG
     Route: 065
  2. TUKYSA [Suspect]
     Active Substance: TUCATINIB
     Dosage: 300 MG, BID
     Route: 048

REACTIONS (3)
  - Pneumonitis [Unknown]
  - Renal injury [Unknown]
  - Malaise [Unknown]
